FAERS Safety Report 12797154 (Version 1)
Quarter: 2016Q3

REPORT INFORMATION
  Report Type: Report from Study
  Country: US (occurrence: US)
  Receive Date: 20160929
  Receipt Date: 20160929
  Transmission Date: 20161109
  Serious: Yes (Other)
  Sender: FDA-Public Use
  Company Number: US-AMGEN-USASL2016132057

PATIENT
  Age: 68 Year
  Sex: Male

DRUGS (2)
  1. ENBREL [Suspect]
     Active Substance: ETANERCEPT
     Dosage: UNK, QWK
     Route: 065
  2. ENBREL [Suspect]
     Active Substance: ETANERCEPT
     Indication: PSORIASIS
     Dosage: 50 MG, 2 TIMES/WK
     Route: 065
     Dates: end: 2016

REACTIONS (10)
  - Dysphonia [Unknown]
  - Tendon disorder [Unknown]
  - Neuropathy peripheral [Unknown]
  - Muscle swelling [Unknown]
  - Type 2 diabetes mellitus [Unknown]
  - Feeling abnormal [Unknown]
  - Memory impairment [Unknown]
  - Eye disorder [Unknown]
  - Muscle disorder [Unknown]
  - Drug effect incomplete [Unknown]

NARRATIVE: CASE EVENT DATE: 2014
